FAERS Safety Report 4718001-2 (Version None)
Quarter: 2005Q3

REPORT INFORMATION
  Report Type: 
  Country: None (occurrence: None)
  Receive Date: 20050718
  Receipt Date: 20050304
  Transmission Date: 20060218
  Serious: No
  Sender: FDA-Public Use
  Company Number: 2005000510

PATIENT
  Age: 81 Year
  Sex: Female
  Weight: 61.6892 kg

DRUGS (2)
  1. TARCEVA [Suspect]
     Indication: NON-SMALL CELL LUNG CANCER
     Dosage: 150 MG (QD), ORAL   3 DOSES
     Route: 048
  2. DIURETIC [Concomitant]

REACTIONS (2)
  - LIP BLISTER [None]
  - TONGUE OEDEMA [None]
